FAERS Safety Report 10387654 (Version 3)
Quarter: 2015Q2

REPORT INFORMATION
  Report Type: Spontaneous
  Country: US (occurrence: US)
  Receive Date: 20140815
  Receipt Date: 20150611
  Transmission Date: 20150821
  Serious: Yes (Hospitalization)
  Sender: FDA-Public Use
  Company Number: US-BAYER-2014-121462

PATIENT
  Age: 23 Year
  Sex: Female
  Weight: 82 kg

DRUGS (2)
  1. ALBUTEROL. [Concomitant]
     Active Substance: ALBUTEROL
     Indication: ASTHMA
     Dosage: UNK
     Dates: start: 1986
  2. MIRENA [Suspect]
     Active Substance: LEVONORGESTREL
     Indication: CONTRACEPTION
     Dosage: 20 MCG/24HR, CONT
     Route: 015
     Dates: start: 20080708, end: 20090730

REACTIONS (11)
  - Anxiety [None]
  - Device issue [None]
  - Indifference [None]
  - Dyspareunia [None]
  - Psychological trauma [None]
  - Sexual dysfunction [None]
  - Emotional distress [None]
  - Injury [None]
  - Uterine perforation [None]
  - Depression [None]
  - Pain [None]

NARRATIVE: CASE EVENT DATE: 200903
